FAERS Safety Report 6648973-0 (Version None)
Quarter: 2010Q1

REPORT INFORMATION
  Report Type: 
  Country: None (occurrence: None)
  Receive Date: 20100324
  Receipt Date: 20100312
  Transmission Date: 20100710
  Serious: Yes (Hospitalization, Other)
  Sender: FDA-Public Use
  Company Number: US-MERCK-1002USA01720

PATIENT
  Age: 15 Year
  Sex: Female
  Weight: 51 kg

DRUGS (5)
  1. SINGULAIR [Suspect]
     Indication: ASTHMA
     Route: 048
     Dates: start: 20020101
  2. ZYRTEC [Concomitant]
     Route: 065
  3. ADVAIR DISKUS 100/50 [Concomitant]
     Route: 055
  4. ALLERGENIC EXTRACT [Concomitant]
     Route: 065
  5. ALLERGENIC EXTRACT [Concomitant]
     Route: 065

REACTIONS (26)
  - ABNORMAL BEHAVIOUR [None]
  - ADVERSE EVENT [None]
  - AGGRESSION [None]
  - AGITATION [None]
  - AMNESIA [None]
  - ANTISOCIAL BEHAVIOUR [None]
  - APATHY [None]
  - BIPOLAR DISORDER [None]
  - CRYING [None]
  - DECREASED APPETITE [None]
  - DECREASED INTEREST [None]
  - DEPRESSION [None]
  - DISTURBANCE IN ATTENTION [None]
  - DISTURBANCE IN SOCIAL BEHAVIOUR [None]
  - DRUG ABUSE [None]
  - INSOMNIA [None]
  - INTENTIONAL SELF-INJURY [None]
  - IRRITABILITY [None]
  - MOOD SWINGS [None]
  - PSYCHOTIC DISORDER [None]
  - SEXUAL ABUSE [None]
  - SHOPLIFTING [None]
  - SOCIAL AVOIDANT BEHAVIOUR [None]
  - SUBSTANCE ABUSE [None]
  - SUICIDAL IDEATION [None]
  - SUICIDE ATTEMPT [None]
